FAERS Safety Report 5992983-3 (Version None)
Quarter: 2008Q4

REPORT INFORMATION
  Report Type: 
  Country: None (occurrence: None)
  Receive Date: 20081210
  Receipt Date: 20081210
  Transmission Date: 20090506
  Serious: Yes (Life-Threatening)
  Sender: FDA-Public Use
  Company Number: None

PATIENT
  Age: 52 Year
  Sex: Female
  Weight: 90.7194 kg

DRUGS (2)
  1. PROAIR HFA [Suspect]
     Indication: ASTHMA
     Dosage: 2 PUFFS Q4H INHAL
     Route: 055
     Dates: start: 20081119, end: 20081125
  2. PROAIR HFA [Suspect]
     Indication: PNEUMONIA
     Dosage: 2 PUFFS Q4H INHAL
     Route: 055
     Dates: start: 20081119, end: 20081125

REACTIONS (3)
  - CONDITION AGGRAVATED [None]
  - DYSPNOEA [None]
  - PRODUCT QUALITY ISSUE [None]
